FAERS Safety Report 22061792 (Version 1)
Quarter: 2023Q1

REPORT INFORMATION
  Report Type: Report from Study
  Country: AR (occurrence: AR)
  Receive Date: 20230304
  Receipt Date: 20230304
  Transmission Date: 20230417
  Serious: Yes (Other)
  Sender: FDA-Public Use
  Company Number: AR-ABBVIE-20K-007-3675541-00

PATIENT
  Age: 12 Year
  Sex: Female

DRUGS (1)
  1. HUMIRA [Suspect]
     Active Substance: ADALIMUMAB
     Indication: Juvenile idiopathic arthritis
     Dosage: 40 MILLIGRAM
     Route: 058
     Dates: start: 20171215

REACTIONS (3)
  - Exostosis [Recovering/Resolving]
  - Arthritis [Recovering/Resolving]
  - Benign joint neoplasm [Recovering/Resolving]

NARRATIVE: CASE EVENT DATE: 20221101
